FAERS Safety Report 10932618 (Version 1)
Quarter: 2015Q1

REPORT INFORMATION
  Report Type: Spontaneous
  Country: US (occurrence: None)
  Receive Date: 20150319
  Receipt Date: 20150319
  Transmission Date: 20150721
  Serious: No
  Sender: FDA-Public Use
  Company Number: None

PATIENT
  Age: 57 Year
  Sex: Female
  Weight: 102.06 kg

DRUGS (8)
  1. VITAMIN D [Concomitant]
     Active Substance: CHOLECALCIFEROL
  2. WELLBUTRIN [Concomitant]
     Active Substance: BUPROPION HYDROCHLORIDE
  3. STRATTERRA [Concomitant]
  4. WELLBUTRIN XL [Concomitant]
     Active Substance: BUPROPION HYDROCHLORIDE
  5. BLACK COHOSH [Concomitant]
     Active Substance: BLACK COHOSH
  6. FAMOTIDINE. [Concomitant]
     Active Substance: FAMOTIDINE
  7. TANZEUM [Suspect]
     Active Substance: ALBIGLUTIDE
     Indication: TYPE 2 DIABETES MELLITUS
     Dosage: ONE UNIT ONCE PER WEEK GIVEN INTO/UNDER THE SKIN
     Route: 058
     Dates: start: 20150308, end: 20150315
  8. LISINOPRIL. [Concomitant]
     Active Substance: LISINOPRIL

REACTIONS (4)
  - Injection site erythema [None]
  - Injection site discolouration [None]
  - Injection site pruritus [None]
  - Injection site oedema [None]

NARRATIVE: CASE EVENT DATE: 20150308
